FAERS Safety Report 4880511-5 (Version None)
Quarter: 2006Q1

REPORT INFORMATION
  Report Type: 
  Country: None (occurrence: None)
  Receive Date: 20060113
  Receipt Date: 20030910
  Transmission Date: 20060701
  Serious: Yes (Hospitalization, Other)
  Sender: FDA-Public Use
  Company Number: US-MERCK-0309USA01194

PATIENT
  Age: 55 Year
  Sex: Female
  Weight: 80 kg

DRUGS (5)
  1. VIOXX [Suspect]
     Indication: OSTEOARTHRITIS
     Route: 048
     Dates: start: 19990101, end: 20001023
  2. VIOXX [Suspect]
     Route: 065
     Dates: start: 20010418
  3. BUSPAR [Concomitant]
     Route: 065
  4. ZOLOFT [Concomitant]
     Route: 065
  5. LORATADINE [Concomitant]
     Route: 065

REACTIONS (19)
  - ANAEMIA [None]
  - ANXIETY [None]
  - ARTERIOSCLEROSIS CORONARY ARTERY [None]
  - BRONCHITIS ACUTE [None]
  - CHEST PAIN [None]
  - DEEP VEIN THROMBOSIS [None]
  - DEPRESSION [None]
  - DYSLIPIDAEMIA [None]
  - DYSPNOEA [None]
  - HAEMOTHORAX [None]
  - HYPERTENSION [None]
  - NASOPHARYNGITIS [None]
  - PLEURISY [None]
  - PULMONARY ARTERY THROMBOSIS [None]
  - PULMONARY INFARCTION [None]
  - RHEUMATOID ARTHRITIS [None]
  - THROMBOCYTOPENIC PURPURA [None]
  - VIRAL INFECTION [None]
  - WEIGHT INCREASED [None]
